FAERS Safety Report 21238936 (Version 1)
Quarter: 2022Q3

REPORT INFORMATION
  Report Type: Spontaneous
  Country: US (occurrence: US)
  Receive Date: 20220822
  Receipt Date: 20220822
  Transmission Date: 20221026
  Serious: Yes (Disabling)
  Sender: FDA-Public Use
  Company Number: US-CARA THERAPEUTICS, INC.-2022-00070-US

PATIENT

DRUGS (35)
  1. KORSUVA [Suspect]
     Active Substance: DIFELIKEFALIN ACETATE
     Indication: Pruritus
     Dosage: 1.3 MILLILITER, ONCE
     Route: 042
     Dates: start: 20220629, end: 20220701
  2. KORSUVA [Suspect]
     Active Substance: DIFELIKEFALIN ACETATE
     Indication: Chronic kidney disease
  3. LEXAPRO [Concomitant]
     Active Substance: ESCITALOPRAM OXALATE
     Indication: Depression
     Dosage: 20 MILLIGRAM, QD
  4. LEXAPRO [Concomitant]
     Active Substance: ESCITALOPRAM OXALATE
     Dosage: 10 MILLIGRAM, QD
  5. AMITRIPTYLINE [Concomitant]
     Active Substance: AMITRIPTYLINE
     Indication: Sleep disorder
     Dosage: 50 MILLIGRAM, QHS
     Dates: start: 20220626
  6. AMITRIPTYLINE [Concomitant]
     Active Substance: AMITRIPTYLINE
     Indication: Pain
     Dosage: 25 MILLIGRAM, QHS
  7. AMITRIPTYLINE [Concomitant]
     Active Substance: AMITRIPTYLINE
     Indication: Diabetic neuropathy
     Dosage: 10 MILLIGRAM, QHS
  8. LORAZEPAM [Concomitant]
     Active Substance: LORAZEPAM
     Indication: Dialysis
     Dosage: 0.5 MILLIGRAM; DIALYSIS DAYS
     Dates: start: 20220105
  9. LORAZEPAM [Concomitant]
     Active Substance: LORAZEPAM
     Indication: Prophylaxis
  10. LORAZEPAM [Concomitant]
     Active Substance: LORAZEPAM
     Indication: Relaxation therapy
  11. LORAZEPAM [Concomitant]
     Active Substance: LORAZEPAM
     Indication: Nervousness
  12. LORAZEPAM [Concomitant]
     Active Substance: LORAZEPAM
     Indication: Anxiety
  13. LORAZEPAM [Concomitant]
     Active Substance: LORAZEPAM
     Indication: Pain
  14. PERCOCET [Concomitant]
     Active Substance: ACETAMINOPHEN\OXYCODONE HYDROCHLORIDE
     Indication: Limb operation
     Dosage: VARIABLE DOSING; ORIGINALLY THREE TIMES A WEEK WITH DIALYSIS, BEFORE DIALYSIS
  15. PERCOCET [Concomitant]
     Active Substance: ACETAMINOPHEN\OXYCODONE HYDROCHLORIDE
     Indication: Pain
  16. PERCOCET [Concomitant]
     Active Substance: ACETAMINOPHEN\OXYCODONE HYDROCHLORIDE
     Indication: Nervousness
  17. VICTOZA [Concomitant]
     Active Substance: LIRAGLUTIDE
     Indication: Diabetes mellitus
     Dosage: 1.8 MILLIGRAM, QD (0.3 ML DAILY)
  18. MELATONIN [Concomitant]
     Active Substance: MELATONIN
     Indication: Sleep disorder
  19. WARFARIN [Concomitant]
     Active Substance: WARFARIN
     Indication: Thrombosis prophylaxis
     Dosage: UNK; VARIABLE
  20. WARFARIN [Concomitant]
     Active Substance: WARFARIN
     Indication: Cerebrovascular accident prophylaxis
  21. WARFARIN [Concomitant]
     Active Substance: WARFARIN
     Indication: Atrial fibrillation
  22. WARFARIN [Concomitant]
     Active Substance: WARFARIN
     Indication: Atrial fibrillation
  23. METOPROLOL TARTRATE [Concomitant]
     Active Substance: METOPROLOL TARTRATE
     Indication: Heart rate increased
     Dosage: 50 MILLIGRAM, BID
  24. OMEPRAZOLE [Concomitant]
     Active Substance: OMEPRAZOLE
     Indication: Gastric disorder
     Dosage: 40 MILLIGRAM, QD
  25. ALLOPURINOL [Concomitant]
     Active Substance: ALLOPURINOL
     Indication: Gout
     Dosage: 100 MILLIGRAM, QD
  26. ALLOPURINOL [Concomitant]
     Active Substance: ALLOPURINOL
     Dosage: 100 MILLIGRAM, MWF
  27. VITAMINS NOS [Concomitant]
     Active Substance: VITAMINS
     Indication: Chronic kidney disease
     Dosage: UNK
  28. SEVELAMER [Concomitant]
     Active Substance: SEVELAMER
     Indication: Phosphorus metabolism disorder
     Dosage: 2.4 GRAM, WITH EACH MEAL
  29. SALICYLIC ACID [Concomitant]
     Active Substance: SALICYLIC ACID
     Indication: Dermatosis
     Dosage: UNK, BID
  30. OXYCODONE [Concomitant]
     Active Substance: OXYCODONE
     Indication: Anxiety
     Dosage: UNK
     Dates: start: 20220303
  31. OXYCODONE [Concomitant]
     Active Substance: OXYCODONE
     Indication: Pain
  32. OXYCODONE [Concomitant]
     Active Substance: OXYCODONE
     Indication: Dialysis
  33. ALBUTEROL SULFATE [Concomitant]
     Active Substance: ALBUTEROL SULFATE
     Indication: Dyspnoea
     Dosage: UNK, PRN
  34. ADVAIR UNSPEC [Concomitant]
     Indication: Dyspnoea
     Dosage: UNK, QD
  35. KENALOG [Concomitant]
     Active Substance: TRIAMCINOLONE ACETONIDE
     Dosage: UNK, PRN

REACTIONS (10)
  - Pain in extremity [Recovering/Resolving]
  - Electric shock sensation [Recovering/Resolving]
  - Pain [Recovering/Resolving]
  - Condition aggravated [Recovering/Resolving]
  - Nervousness [Recovering/Resolving]
  - Screaming [Recovering/Resolving]
  - Fall [Unknown]
  - Blood glucose increased [Unknown]
  - Anticoagulation drug level below therapeutic [Unknown]
  - Skin abrasion [Unknown]

NARRATIVE: CASE EVENT DATE: 20220629
